FAERS Safety Report 7135516-0 (Version None)
Quarter: 2010Q4

REPORT INFORMATION
  Report Type: 
  Country: None (occurrence: None)
  Receive Date: 20101203
  Receipt Date: 20101122
  Transmission Date: 20110411
  Serious: Yes (Hospitalization, Other)
  Sender: FDA-Public Use
  Company Number: US-ELI_LILLY_AND_COMPANY-US200911006571

PATIENT
  Sex: Female
  Weight: 49.887 kg

DRUGS (8)
  1. FORTEO [Suspect]
     Indication: OSTEOPOROSIS
     Dosage: 20 UG, DAILY (1/D)
     Route: 065
     Dates: start: 20090901
  2. SYNTHROID [Concomitant]
  3. VYTORIN [Concomitant]
  4. PRILOSEC [Concomitant]
  5. ARICEPT [Concomitant]
  6. SINGULAIR [Concomitant]
  7. NASACORT [Concomitant]
  8. AMLODIPINE [Concomitant]

REACTIONS (3)
  - FAECES DISCOLOURED [None]
  - JUGULAR VEIN THROMBOSIS [None]
  - SIALOADENITIS [None]
